FAERS Safety Report 13449757 (Version 1)
Quarter: 2017Q2

REPORT INFORMATION
  Report Type: Spontaneous
  Country: US (occurrence: US)
  Receive Date: 20170417
  Receipt Date: 20170417
  Transmission Date: 20170830
  Serious: No
  Sender: FDA-Public Use
  Company Number: US-BANPHARM-20164730

PATIENT
  Age: 81 Year
  Sex: Male
  Weight: 77.11 kg

DRUGS (5)
  1. WALGREEN^S BRAND ENTERIC ASPIRIN [Concomitant]
  2. BAYER LOW DOSE [Suspect]
     Active Substance: ASPIRIN
  3. ENALIPRIL [Concomitant]
  4. FINASTERIDE. [Concomitant]
     Active Substance: FINASTERIDE
  5. ALEVE [Suspect]
     Active Substance: NAPROXEN SODIUM
     Indication: MYALGIA
     Dosage: 1 DF, PRN
     Route: 048
     Dates: start: 2014

REACTIONS (3)
  - Incorrect route of drug administration [Unknown]
  - Feeling abnormal [Unknown]
  - Incorrect drug administration duration [Unknown]
